FAERS Safety Report 7274505-2 (Version None)
Quarter: 2011Q1

REPORT INFORMATION
  Report Type: 
  Country: None (occurrence: None)
  Receive Date: 20110204
  Receipt Date: 20110127
  Transmission Date: 20110831
  Serious: Yes (Other)
  Sender: FDA-Public Use
  Company Number: NL-JNJFOC-20091107644

PATIENT
  Age: 55 Year
  Sex: Male

DRUGS (3)
  1. BETAMETHASONE [Concomitant]
     Route: 065
  2. BUDESONIDE [Concomitant]
     Route: 065
  3. ITRACONAZOLE [Suspect]
     Indication: TINEA PEDIS
     Route: 065

REACTIONS (2)
  - INCORRECT DOSE ADMINISTERED [None]
  - PANCREATITIS [None]
